FAERS Safety Report 21602165 (Version 2)
Quarter: 2022Q4

REPORT INFORMATION
  Report Type: Spontaneous
  Country: US (occurrence: US)
  Receive Date: 20221116
  Receipt Date: 20221216
  Transmission Date: 20230113
  Serious: No
  Sender: FDA-Public Use
  Company Number: US-PFIZER INC-PV202200103782

PATIENT
  Age: 59 Year
  Sex: Female

DRUGS (2)
  1. IBRANCE [Suspect]
     Active Substance: PALBOCICLIB
     Indication: Breast cancer female
     Dosage: UNK
     Dates: start: 20151128
  2. LETROZOLE [Suspect]
     Active Substance: LETROZOLE
     Indication: Breast cancer female
     Dosage: UNK
     Dates: start: 20151128

REACTIONS (6)
  - Illness [Unknown]
  - Nasopharyngitis [Unknown]
  - Influenza [Unknown]
  - Oropharyngeal pain [Unknown]
  - Cough [Unknown]
  - Product storage error [Unknown]
